FAERS Safety Report 8019979-4 (Version None)
Quarter: 2011Q4

REPORT INFORMATION
  Report Type: 
  Country: None (occurrence: None)
  Receive Date: 20111227
  Receipt Date: 20111218
  Transmission Date: 20120403
  Serious: Yes (Death, Other)
  Sender: FDA-Public Use
  Company Number: 2011ST000553

PATIENT
  Age: 3 Year
  Sex: Female

DRUGS (3)
  1. IMIPENEM [Concomitant]
  2. ABELCET [Suspect]
     Indication: PYREXIA
     Dosage: 5 MG/KG;QD;IV
     Route: 042
     Dates: start: 19970409, end: 19970411
  3. AMIKACIN [Concomitant]

REACTIONS (4)
  - SKIN REACTION [None]
  - DISEASE COMPLICATION [None]
  - PAPULE [None]
  - CARDIAC DISORDER [None]
